FAERS Safety Report 6373598-4 (Version None)
Quarter: 2009Q3

REPORT INFORMATION
  Report Type: 
  Country: None (occurrence: None)
  Receive Date: 20090921
  Receipt Date: 20090908
  Transmission Date: 20100115
  Serious: Yes (Hospitalization, Other)
  Sender: FDA-Public Use
  Company Number: 87089

PATIENT
  Age: 63 Year
  Sex: Male

DRUGS (1)
  1. MIDAZOLAM HCL [Suspect]
     Dosage: 2.5ML IV EVERY HOUR
     Dates: start: 20090808

REACTIONS (4)
  - DEVICE MALFUNCTION [None]
  - INCORRECT DRUG ADMINISTRATION RATE [None]
  - MEDICATION ERROR [None]
  - SEDATION [None]
